FAERS Safety Report 25151926 (Version 2)
Quarter: 2025Q2

REPORT INFORMATION
  Report Type: Spontaneous
  Country: ES (occurrence: ES)
  Receive Date: 20250402
  Receipt Date: 20250612
  Transmission Date: 20250716
  Serious: Yes (Death, Hospitalization, Other)
  Sender: BRISTOL-MYERS SQUIBB COMPANY
  Company Number: None

PATIENT
  Age: 72 Year
  Sex: Male

DRUGS (2)
  1. OPDIVO [Interacting]
     Active Substance: NIVOLUMAB
     Indication: Renal cell carcinoma
     Route: 042
     Dates: start: 20241007, end: 20241007
  2. YERVOY [Interacting]
     Active Substance: IPILIMUMAB
     Indication: Renal cell carcinoma
     Route: 048
     Dates: start: 20241007, end: 20241007

REACTIONS (5)
  - Myocarditis-myositis-myasthenia gravis overlap syndrome [Unknown]
  - Hepatocellular injury [Unknown]
  - Shock haemorrhagic [Fatal]
  - Drug interaction [Unknown]
  - Off label use [Unknown]

NARRATIVE: CASE EVENT DATE: 20241012
